FAERS Safety Report 4639825-6 (Version None)
Quarter: 2005Q2

REPORT INFORMATION
  Report Type: 
  Country: None (occurrence: None)
  Receive Date: 20050415
  Receipt Date: 20050329
  Transmission Date: 20051028
  Serious: Yes (Hospitalization)
  Sender: FDA-Public Use
  Company Number: GXBR2005US00579

PATIENT
  Age: 45 Year
  Sex: Female
  Weight: 68 kg

DRUGS (6)
  1. RIBAVIRIN [Suspect]
     Indication: HEPATITIS C
     Dosage: ORAL
     Route: 048
     Dates: start: 20041204
  2. PEGINTRON ^SCHERING-PLOUGH^(PEGINTERON ALFA-2B) [Suspect]
     Indication: HEPATITIS C
     Dosage: 150 UG, SUBCUTANEOUS
     Route: 058
     Dates: start: 20041204
  3. LEXAPRO [Concomitant]
  4. MULTIVITAMINS (ASCORBIC ACID, ERGOCALCIFEROL, FOLIC ACID, NICOTINAMIDE [Concomitant]
  5. RANITIDINE HYDROCHLORIDE [Concomitant]
  6. VITAMIN C (ASCORBIC ACID) [Concomitant]

REACTIONS (2)
  - BRONCHITIS [None]
  - DEHYDRATION [None]
